FAERS Safety Report 10682315 (Version 5)
Quarter: 2015Q2

REPORT INFORMATION
  Report Type: Spontaneous
  Country: US (occurrence: US)
  Receive Date: 20141230
  Receipt Date: 20150508
  Transmission Date: 20150821
  Serious: Yes (Hospitalization, Disabling)
  Sender: FDA-Public Use
  Company Number: US-009507513-1204USA04469

PATIENT
  Sex: Male
  Weight: 73.47 kg

DRUGS (2)
  1. PROPECIA [Suspect]
     Active Substance: FINASTERIDE
     Indication: ALOPECIA
     Dosage: 1 MG, QD
     Route: 048
     Dates: start: 200804, end: 2008
  2. PROPECIA [Suspect]
     Active Substance: FINASTERIDE
     Dosage: 1 MG, QD
     Route: 048
     Dates: start: 200901, end: 200901

REACTIONS (28)
  - Premature ejaculation [Not Recovered/Not Resolved]
  - Obsessive-compulsive disorder [Unknown]
  - Asthenia [Recovered/Resolved]
  - Testicular disorder [Unknown]
  - Cognitive disorder [Recovered/Resolved]
  - Muscle atrophy [Recovered/Resolved]
  - Constipation [Unknown]
  - Penile pain [Unknown]
  - Sexual dysfunction [Not Recovered/Not Resolved]
  - Off label use [Unknown]
  - Body dysmorphic disorder [Unknown]
  - Memory impairment [Recovered/Resolved]
  - Insomnia [Unknown]
  - Back injury [Unknown]
  - Libido decreased [Unknown]
  - Depression [Recovering/Resolving]
  - Ejaculation failure [Not Recovered/Not Resolved]
  - Photophobia [Unknown]
  - Genital hypoaesthesia [Unknown]
  - Major depression [Unknown]
  - Myalgia [Unknown]
  - Organic erectile dysfunction [Recovering/Resolving]
  - Anxiety [Recovered/Resolved]
  - Thinking abnormal [Not Recovered/Not Resolved]
  - Dry skin [Unknown]
  - Testicular pain [Unknown]
  - Primary hypogonadism [Recovered/Resolved]
  - Insulin resistance [Unknown]

NARRATIVE: CASE EVENT DATE: 200901
